FAERS Safety Report 8525552-1 (Version None)
Quarter: 2012Q3

REPORT INFORMATION
  Report Type: 
  Country: None (occurrence: None)
  Receive Date: 20120720
  Receipt Date: 20120710
  Transmission Date: 20120928
  Serious: Yes (Hospitalization, Other)
  Sender: FDA-Public Use
  Company Number: JP-VERTEX PHARMACEUTICALS INC.-AE-2012-006229

PATIENT
  Age: 63 Year
  Sex: Female

DRUGS (20)
  1. PEG-INTRON [Concomitant]
     Route: 058
     Dates: start: 20120229, end: 20120415
  2. TELAVIC (TELAPREVIR) [Suspect]
     Route: 048
     Dates: start: 20120229, end: 20120415
  3. REBETOL [Concomitant]
     Route: 048
     Dates: start: 20120208, end: 20120214
  4. REBETOL [Concomitant]
     Route: 048
     Dates: start: 20120215, end: 20120229
  5. REBETOL [Concomitant]
     Route: 048
     Dates: start: 20120409, end: 20120415
  6. REBETOL [Concomitant]
     Route: 048
     Dates: start: 20120507, end: 20120513
  7. PEG-INTRON [Concomitant]
     Route: 058
     Dates: start: 20120416, end: 20120430
  8. PEG-INTRON [Concomitant]
     Route: 058
     Dates: start: 20120501
  9. REBETOL [Concomitant]
     Route: 048
     Dates: start: 20120313, end: 20120408
  10. PAXIL [Concomitant]
     Route: 048
     Dates: start: 20120201
  11. TELAVIC (TELAPREVIR) [Suspect]
     Route: 048
     Dates: start: 20120215, end: 20120229
  12. TELAVIC (TELAPREVIR) [Suspect]
     Route: 048
     Dates: start: 20120208, end: 20120214
  13. TELAVIC (TELAPREVIR) [Suspect]
     Indication: HEPATITIS C
     Route: 048
     Dates: start: 20120117, end: 20120207
  14. REBETOL [Concomitant]
     Indication: HEPATITIS C
     Route: 048
     Dates: start: 20120117, end: 20120207
  15. LOXONIN [Concomitant]
     Route: 048
     Dates: start: 20120229, end: 20120422
  16. REBETOL [Concomitant]
     Route: 048
     Dates: start: 20120229, end: 20120312
  17. REBETOL [Concomitant]
     Route: 048
     Dates: start: 20120501, end: 20120506
  18. REBETOL [Concomitant]
     Route: 048
     Dates: start: 20120514
  19. PEG-INTRON [Concomitant]
     Indication: HEPATITIS C
     Route: 058
     Dates: start: 20120117, end: 20120201
  20. PEG-INTRON [Concomitant]
     Route: 058
     Dates: start: 20120208, end: 20120215

REACTIONS (2)
  - MALAISE [None]
  - ANAEMIA [None]
